FAERS Safety Report 7095162-4 (Version None)
Quarter: 2010Q4

REPORT INFORMATION
  Report Type: 
  Country: None (occurrence: None)
  Receive Date: 20101111
  Receipt Date: 20101101
  Transmission Date: 20110411
  Serious: Yes (Other)
  Sender: FDA-Public Use
  Company Number: US-JNJFOC-20101002205

PATIENT
  Sex: Female

DRUGS (6)
  1. STELARA [Suspect]
     Indication: PSORIASIS
     Route: 058
  2. COREG [Concomitant]
  3. BENICAR [Concomitant]
  4. DIGOXIN [Concomitant]
  5. AMBIEN [Concomitant]
  6. ALLOPURINOL [Concomitant]

REACTIONS (3)
  - DRY EYE [None]
  - GLAUCOMA [None]
  - VISION BLURRED [None]
